FAERS Safety Report 10084404 (Version 3)
Quarter: 2017Q2

REPORT INFORMATION
  Report Type: Spontaneous
  Country: US (occurrence: US)
  Receive Date: 20140417
  Receipt Date: 20170411
  Transmission Date: 20170829
  Serious: Yes (Congenital Anomaly)
  Sender: FDA-Public Use
  Company Number: US-PFIZER INC-2014107835

PATIENT
  Sex: Male

DRUGS (23)
  1. ZOLOFT [Suspect]
     Active Substance: SERTRALINE HYDROCHLORIDE
     Indication: ANXIETY
     Dosage: DOSAGE FORM: TABLETS
     Route: 064
     Dates: start: 20010920, end: 20021010
  2. DOXEPIN HCL [Suspect]
     Active Substance: DOXEPIN HYDROCHLORIDE
     Dosage: DOSAGE FORM: CAPSULE
     Route: 064
     Dates: start: 20020404, end: 20021114
  3. AMOXICILLIN. [Suspect]
     Active Substance: AMOXICILLIN
     Indication: FURUNCLE
     Dosage: DOSAGE FORM: UNSPECIFIED
     Route: 064
     Dates: start: 20020518, end: 20030204
  4. ZOLOFT [Suspect]
     Active Substance: SERTRALINE HYDROCHLORIDE
     Indication: DEPRESSION
     Route: 064
  5. SPIRONOLACTONE. [Suspect]
     Active Substance: SPIRONOLACTONE
     Dosage: DOSAGE FORM: UNSPECIFIED
     Route: 064
     Dates: start: 20020617, end: 20021114
  6. MAXALT [Suspect]
     Active Substance: RIZATRIPTAN BENZOATE
     Indication: MIGRAINE
     Dosage: DOSAGE FORM: TABLETS
     Route: 064
  7. IBUPROFEN. [Suspect]
     Active Substance: IBUPROFEN
     Dosage: 800 MG, UNK
     Route: 064
     Dates: start: 20020901
  8. TOPAMAX [Suspect]
     Active Substance: TOPIRAMATE
     Indication: HEADACHE
     Dosage: 100 MG, UNK
     Route: 064
     Dates: start: 20020502, end: 20021010
  9. TOPAMAX [Suspect]
     Active Substance: TOPIRAMATE
     Indication: DEPRESSION
  10. ERY-TAB [Suspect]
     Active Substance: ERYTHROMYCIN
     Dosage: DOSAGE FORM: TABLET
     Route: 064
     Dates: start: 20010920, end: 20021114
  11. PRENATAL VITAMINS [Concomitant]
     Active Substance: VITAMINS
     Dosage: DOSAGE FORM: UNSPECIFIED
     Route: 064
  12. PHENAZOPYRIDINE. [Suspect]
     Active Substance: PHENAZOPYRIDINE
     Dosage: DOSAGE FORM: UNSPECIFIED
     Route: 064
     Dates: start: 20021230
  13. TOPAMAX [Suspect]
     Active Substance: TOPIRAMATE
     Indication: ANXIETY
  14. ZYRTEC [Suspect]
     Active Substance: CETIRIZINE HYDROCHLORIDE
     Dosage: 10 MG, UNK
     Route: 064
     Dates: start: 20001116, end: 20030224
  15. PRIMACARE [Suspect]
     Active Substance: ALPHA-TOCOPHEROL ACETATE\BIOTIN\CALCIUM ASCORBATE\CALCIUM CARBONATE\CHOLECALCIFEROL\FOLIC ACID\LINOLEIC ACID\MAGNESIUM OXIDE\NIACINAMIDE\OMEGA-3 FATTY ACIDS\POTASSIUM IODIDE\PYRIDOXINE\RIBOFLAVIN\ZINC
     Dosage: UNK
     Route: 064
     Dates: start: 20021219
  16. IRON [Concomitant]
     Active Substance: IRON
     Dosage: DOSAGE FORM: TABLET
     Route: 064
  17. AMITRIPTYLINE HYDROCHLORIDE. [Suspect]
     Active Substance: AMITRIPTYLINE HYDROCHLORIDE
     Dosage: DOSAGE FORM: UNSPECIFIED
     Route: 064
     Dates: start: 20011105, end: 20021114
  18. MECLIZINE [Suspect]
     Active Substance: MECLIZINE HYDROCHLORIDE
     Dosage: DOSAGE FORM: TABLET
     Route: 064
     Dates: start: 20030204
  19. FERROUS SULFATE. [Concomitant]
     Active Substance: FERROUS SULFATE
     Dosage: DOSAGE FORM: TABLET
     Route: 064
  20. BACTRIM [Suspect]
     Active Substance: SULFAMETHOXAZOLE\TRIMETHOPRIM
     Dosage: DOSAGE FORM: UNSPECIFIED
     Route: 064
     Dates: start: 20021212
  21. TOPAMAX [Suspect]
     Active Substance: TOPIRAMATE
     Indication: MIGRAINE
     Dosage: MATERNAL DOSING
     Route: 064
     Dates: start: 20020104, end: 20020322
  22. HYDROXYZINE PAMOATE. [Suspect]
     Active Substance: HYDROXYZINE PAMOATE
     Dosage: DOSAGE FORM: CAPSULE
     Route: 064
     Dates: start: 20030211, end: 20030606
  23. ZITHROMAX [Suspect]
     Active Substance: AZITHROMYCIN DIHYDRATE
     Dosage: DOSAGE FORM: UNSPECIFIED
     Route: 064
     Dates: start: 20030226

REACTIONS (10)
  - Ear disorder [Unknown]
  - Maternal exposure during pregnancy [Recovered/Resolved]
  - Cleft palate [Unknown]
  - Cardiac valve disease [Unknown]
  - Cardiac murmur [Unknown]
  - Eustachian tube dysfunction [Unknown]
  - Decreased appetite [Unknown]
  - Cleft lip [Unknown]
  - Attention deficit/hyperactivity disorder [Unknown]
  - Emotional disorder [Unknown]
